FAERS Safety Report 4360523-0 (Version None)
Quarter: 2004Q2

REPORT INFORMATION
  Report Type: 
  Country: None (occurrence: None)
  Receive Date: 20040519
  Receipt Date: 20040301
  Transmission Date: 20050107
  Serious: Yes (Life-Threatening, Other)
  Sender: FDA-Public Use
  Company Number: US-GLAXOSMITHKLINE-A0500673A

PATIENT
  Age: 30 Year
  Sex: Female
  Weight: 70.9 kg

DRUGS (3)
  1. AUGMENTIN [Suspect]
     Indication: SINUSITIS
     Dosage: 2G TWICE PER DAY
     Route: 048
     Dates: start: 20040127, end: 20040207
  2. NASACORT AQ [Concomitant]
     Indication: SINUSITIS
     Dosage: 2PUFF PER DAY
     Route: 065
     Dates: start: 20040127
  3. SUDAFED S.A. [Concomitant]
     Indication: SINUSITIS
     Route: 048
     Dates: start: 20040127

REACTIONS (5)
  - FACE OEDEMA [None]
  - HYPERSENSITIVITY [None]
  - LARYNGEAL OEDEMA [None]
  - RASH [None]
  - URTICARIA [None]
